FAERS Safety Report 9144397 (Version 5)
Quarter: 2014Q3

REPORT INFORMATION
  Report Type: Spontaneous
  Country: US (occurrence: US)
  Receive Date: 20130306
  Receipt Date: 20140817
  Transmission Date: 20150326
  Serious: Yes (Hospitalization, Disabling, Other)
  Sender: FDA-Public Use
  Company Number: US-009507513-1303USA000847

PATIENT
  Sex: Female
  Weight: 111.11 kg

DRUGS (3)
  1. NUVARING [Suspect]
     Active Substance: ETHINYL ESTRADIOL\ETONOGESTREL
     Indication: UTERINE LEIOMYOMA
  2. NUVARING [Suspect]
     Active Substance: ETHINYL ESTRADIOL\ETONOGESTREL
     Indication: CONTRACEPTION
  3. NUVARING [Suspect]
     Active Substance: ETHINYL ESTRADIOL\ETONOGESTREL
     Indication: MENORRHAGIA
     Dosage: UNK
     Route: 067
     Dates: start: 20070226, end: 20101214

REACTIONS (20)
  - Bronchitis [Recovered/Resolved]
  - Pain in extremity [Recovered/Resolved]
  - Off label use [Unknown]
  - Pulmonary embolism [Unknown]
  - Maternal exposure before pregnancy [Unknown]
  - Ovarian cyst [Unknown]
  - Limb injury [Unknown]
  - Iron deficiency anaemia [Unknown]
  - Uterine leiomyoma [Unknown]
  - Pelvic pain [Unknown]
  - Pregnancy [Not Recovered/Not Resolved]
  - Hypertension [Unknown]
  - Smear cervix abnormal [Unknown]
  - Tachycardia [Unknown]
  - Road traffic accident [Unknown]
  - Breast cyst excision [Unknown]
  - Inappropriate schedule of drug administration [Unknown]
  - Vaginal discharge [Unknown]
  - Chest pain [Recovered/Resolved]
  - Pneumonia [Unknown]

NARRATIVE: CASE EVENT DATE: 2007
